FAERS Safety Report 11325887 (Version 1)
Quarter: 2015Q3

REPORT INFORMATION
  Report Type: Spontaneous
  Country: US (occurrence: US)
  Receive Date: 20150731
  Receipt Date: 20150731
  Transmission Date: 20151125
  Serious: No
  Sender: FDA-Public Use
  Company Number: US-ROCHE-512663

PATIENT
  Sex: Female

DRUGS (3)
  1. PEG-INTERFERON ALFA 2A [Suspect]
     Active Substance: PEGINTERFERON ALFA-2A
     Indication: PRODUCT USED FOR UNKNOWN INDICATION
     Dosage: DRUG REPORTED AS PEG-INTERFERON ALFA 2A
     Route: 065
  2. PEGASYS [Concomitant]
     Active Substance: PEGINTERFERON ALFA-2A
     Indication: HEPATITIS
     Dosage: OTHER INDICATION: CRYOGLOBULINEMIA, BATCH NUMBER: B0108, EXPIRY DATE: JUNE 2009.
     Route: 065
  3. UNSPECIFIED MEDICATION [Concomitant]
     Active Substance: UNSPECIFIED INGREDIENT
     Dosage: DRUG REPORTED AS ^PILLS THAT GO WITH IT^
     Route: 065

REACTIONS (1)
  - No therapeutic response [Unknown]
